FAERS Safety Report 23700277 (Version 1)
Quarter: 2024Q2

REPORT INFORMATION
  Report Type: Spontaneous
  Country: JP (occurrence: JP)
  Receive Date: 20240403
  Receipt Date: 20240403
  Transmission Date: 20240716
  Serious: Yes (Death)
  Sender: FDA-Public Use
  Company Number: JP-ORPHANEU-2024002268

PATIENT

DRUGS (4)
  1. SIGNIFOR LAR [Suspect]
     Active Substance: PASIREOTIDE PAMOATE
     Indication: Pituitary-dependent Cushing^s syndrome
     Dosage: 10 MILLIGRAM
     Route: 030
     Dates: start: 202304
  2. MITOTANE [Suspect]
     Active Substance: MITOTANE
     Indication: Product used for unknown indication
     Dosage: 1950 MILLIGRAM
     Route: 048
     Dates: start: 202304
  3. METYRAPONE [Suspect]
     Active Substance: METYRAPONE
     Indication: Product used for unknown indication
     Dosage: 500 MILLIGRAM
     Route: 048
     Dates: start: 202304
  4. CORTRIL [Suspect]
     Active Substance: HYDROCORTISONE
     Indication: Product used for unknown indication
     Dosage: 90 MILLIGRAM
     Route: 048
     Dates: start: 202304

REACTIONS (2)
  - Metastasis [Fatal]
  - Condition aggravated [Fatal]
